FAERS Safety Report 9463203 (Version 1)
Quarter: 2013Q3

REPORT INFORMATION
  Report Type: Spontaneous
  Country: GB (occurrence: GB)
  Receive Date: 20130818
  Receipt Date: 20130818
  Transmission Date: 20140515
  Serious: Yes (Other)
  Sender: FDA-Public Use
  Company Number: PHHY2013GB087464

PATIENT
  Age: 65 Year
  Sex: Female
  Weight: 88.91 kg

DRUGS (7)
  1. DOXAZOSIN [Suspect]
     Dates: start: 20130617
  2. AMLODIPINE [Concomitant]
     Dates: start: 20130402, end: 20130528
  3. BENDROFLUMETHIAZIDE [Concomitant]
     Dates: start: 20130402, end: 20130724
  4. CANDESARTAN [Concomitant]
     Dates: start: 20130415, end: 20130724
  5. MEBEVERINE HYDROCHLORIDE [Concomitant]
     Dates: start: 20130617
  6. METOCLOPRAMIDE [Concomitant]
     Dates: start: 20130712, end: 20130721
  7. POTASSIUM CHLORIDE [Concomitant]
     Dates: start: 20130718, end: 20130719

REACTIONS (1)
  - Angioedema [Recovered/Resolved]
